FAERS Safety Report 23014790 (Version 1)
Quarter: 2023Q4

REPORT INFORMATION
  Report Type: Spontaneous
  Country: PL (occurrence: PL)
  Receive Date: 20231002
  Receipt Date: 20231002
  Transmission Date: 20240110
  Serious: Yes (Other)
  Sender: FDA-Public Use
  Company Number: PL-JNJFOC-20230961941

PATIENT
  Age: 70 Year
  Sex: Female

DRUGS (2)
  1. IMBRUVICA [Suspect]
     Active Substance: IBRUTINIB
     Indication: Chronic lymphocytic leukaemia
     Route: 048
  2. TAMOXIFEN [Concomitant]
     Active Substance: TAMOXIFEN
     Indication: Product used for unknown indication

REACTIONS (11)
  - Breast cancer [Unknown]
  - Uterine leiomyoma [Unknown]
  - Endometrial hyperplasia [Unknown]
  - Benign lung neoplasm [Unknown]
  - Pseudomonas bronchitis [Unknown]
  - Bronchiectasis [Unknown]
  - Urinary tract infection [Unknown]
  - Neck pain [Unknown]
  - Bronchitis [Unknown]
  - Back pain [Unknown]
  - Arthralgia [Unknown]

NARRATIVE: CASE EVENT DATE: 20181201
